FAERS Safety Report 10720917 (Version 1)
Quarter: 2015Q1

REPORT INFORMATION
  Report Type: Spontaneous
  Country: US (occurrence: US)
  Receive Date: 20150119
  Receipt Date: 20150119
  Transmission Date: 20150721
  Serious: No
  Sender: FDA-Public Use
  Company Number: US-UNITED THERAPEUTICS-UNT-2014-006459

PATIENT
  Age: 64 Year
  Sex: Male
  Weight: 64.4 kg

DRUGS (7)
  1. TYVASO [Suspect]
     Active Substance: TREPROSTINIL
     Dosage: 18 MICROGRAMS, QID
     Dates: start: 20140822
  2. REVATIO [Concomitant]
     Active Substance: SILDENAFIL CITRATE
     Indication: PRODUCT USED FOR UNKNOWN INDICATION
  3. TYVASO [Suspect]
     Active Substance: TREPROSTINIL
     Dosage: 36 MICROGRAMS, QID
     Dates: start: 20140829
  4. TYVASO [Suspect]
     Active Substance: TREPROSTINIL
     Indication: PULMONARY ARTERIAL HYPERTENSION
     Dosage: 18-54 MICROGRAMS, QID
     Dates: start: 20140822
  5. TYVASO [Suspect]
     Active Substance: TREPROSTINIL
     Dosage: 54 MICROGRAMS, QID
     Dates: start: 2014
  6. ASPIRIN. [Concomitant]
     Active Substance: ASPIRIN
     Indication: PRODUCT USED FOR UNKNOWN INDICATION
  7. LETAIRIS [Suspect]
     Active Substance: AMBRISENTAN
     Indication: PRODUCT USED FOR UNKNOWN INDICATION
     Dosage: 10 MG, QD
     Route: 065
     Dates: start: 20130109

REACTIONS (13)
  - Oedema [Unknown]
  - Vision blurred [Unknown]
  - Abdominal discomfort [Unknown]
  - Nasal congestion [Not Recovered/Not Resolved]
  - Palpitations [Recovered/Resolved]
  - Muscle spasms [Unknown]
  - Headache [Not Recovered/Not Resolved]
  - Pain in jaw [Unknown]
  - Dizziness [Unknown]
  - Fatigue [Unknown]
  - Chest pain [Unknown]
  - Cough [Unknown]
  - Visual impairment [Unknown]

NARRATIVE: CASE EVENT DATE: 2014
